FAERS Safety Report 6416144-9 (Version None)
Quarter: 2009Q4

REPORT INFORMATION
  Report Type: 
  Country: None (occurrence: None)
  Receive Date: 20091023
  Receipt Date: 20091009
  Transmission Date: 20100525
  Serious: Yes (Other)
  Sender: FDA-Public Use
  Company Number: DSU-2009-02188

PATIENT
  Sex: Female

DRUGS (2)
  1. BENICAR [Suspect]
     Indication: DRUG USE FOR UNKNOWN INDICATION
     Dosage: 20 MG (20 MG, QD), PER ORAL
     Route: 048
     Dates: start: 20090301
  2. TENORMIN [Concomitant]

REACTIONS (4)
  - DROOLING [None]
  - MIGRAINE [None]
  - NODULE ON EXTREMITY [None]
  - SPEECH DISORDER [None]
